FAERS Safety Report 16945561 (Version 1)
Quarter: 2019Q4

REPORT INFORMATION
  Report Type: Spontaneous
  Country: US (occurrence: US)
  Receive Date: 20191021
  Receipt Date: 20191021
  Transmission Date: 20200122
  Serious: Yes (Other)
  Sender: FDA-Public Use
  Company Number: None

PATIENT
  Age: 32 Year
  Sex: Female
  Weight: 54.9 kg

DRUGS (15)
  1. IVACAFTOR/TEZACAFTOR [Suspect]
     Active Substance: IVACAFTOR\TEZACAFTOR
     Indication: DEPRESSION
     Route: 048
     Dates: start: 20180410, end: 20181108
  2. DEKA [Concomitant]
     Dates: start: 20161017
  3. HYPERTONIC SALINE [Concomitant]
     Active Substance: SODIUM CHLORIDE
     Dates: start: 20151027
  4. ZYRTEC [Concomitant]
     Active Substance: CETIRIZINE HYDROCHLORIDE
     Dates: start: 20171016
  5. DEPO-PROVERA [Concomitant]
     Active Substance: MEDROXYPROGESTERONE ACETATE
  6. PULMOZYME [Concomitant]
     Active Substance: DORNASE ALFA
     Dates: start: 20140820
  7. OMEPRAZOLE. [Concomitant]
     Active Substance: OMEPRAZOLE
     Dates: start: 20140528
  8. IVACAFTOR/TEZACAFTOR [Suspect]
     Active Substance: IVACAFTOR\TEZACAFTOR
     Indication: SUICIDAL IDEATION
     Route: 048
     Dates: start: 20180410, end: 20181108
  9. MEPHYTON [Concomitant]
     Active Substance: PHYTONADIONE
     Dates: start: 20171010
  10. CAYSTON [Concomitant]
     Active Substance: AZTREONAM
  11. LINZESS [Concomitant]
     Active Substance: LINACLOTIDE
     Dates: start: 20180315
  12. AZITHROMYCIN ANHYDROUS. [Concomitant]
     Active Substance: AZITHROMYCIN ANHYDROUS
     Dates: start: 20171017
  13. TRAMADOL. [Concomitant]
     Active Substance: TRAMADOL
  14. BETHKIS [Concomitant]
     Active Substance: TOBRAMYCIN
  15. ADVAIR HFA [Concomitant]
     Active Substance: FLUTICASONE PROPIONATE\SALMETEROL XINAFOATE

REACTIONS (6)
  - Delusion [None]
  - Aphasia [None]
  - Disturbance in attention [None]
  - Suicidal ideation [None]
  - Depression [None]
  - Fatigue [None]

NARRATIVE: CASE EVENT DATE: 20181108
